FAERS Safety Report 10797644 (Version 4)
Quarter: 2017Q1

REPORT INFORMATION
  Report Type: Spontaneous
  Country: US (occurrence: US)
  Receive Date: 20150216
  Receipt Date: 20170322
  Transmission Date: 20170428
  Serious: No
  Sender: FDA-Public Use
  Company Number: US-PFIZER INC-2015042482

PATIENT
  Age: 64 Year
  Sex: Female

DRUGS (53)
  1. SUMATRIPTAN SUCCINATE. [Concomitant]
     Active Substance: SUMATRIPTAN SUCCINATE
     Indication: EYE DISORDER
  2. SUMATRIPTAN SUCCINATE. [Concomitant]
     Active Substance: SUMATRIPTAN SUCCINATE
     Indication: HEADACHE
  3. RESTASIS [Concomitant]
     Active Substance: CYCLOSPORINE
     Indication: DRY EYE
     Dosage: UNK
  4. ONDANSETRON ODT DRLA [Concomitant]
     Indication: GASTROOESOPHAGEAL REFLUX DISEASE
  5. BIOTIN [Concomitant]
     Active Substance: BIOTIN
     Indication: HAIR INJURY
  6. POTASSIUM CHLORIDE. [Concomitant]
     Active Substance: POTASSIUM CHLORIDE
     Dosage: 10 MEQ, 1X/DAY
  7. BUPRENORPHINE AND NALOXONE [Concomitant]
     Active Substance: BUPRENORPHINE\NALOXONE
     Indication: DEPRESSION
     Dosage: UNK (BUPRENORPHINE - 8MG; NALOXONE-2MG); ONE TAB, VESTY SMALL AMOUNT EACH UNDER TONGUE
     Route: 060
  8. OPTIVE [Concomitant]
     Active Substance: CARBOXYMETHYLCELLULOSE SODIUM\GLYCERIN
     Indication: VISION BLURRED
  9. ALPRAZOLAM. [Concomitant]
     Active Substance: ALPRAZOLAM
     Indication: ANXIETY
     Dosage: 1 MG, AS NEEDED ( 1-2 TIMES DAY)
  10. HYDROCHLOROTHIAZIDE. [Concomitant]
     Active Substance: HYDROCHLOROTHIAZIDE
     Indication: ABDOMINAL DISTENSION
     Dosage: 25 MG, AS NEEDED
  11. HYDROCHLOROTHIAZIDE. [Concomitant]
     Active Substance: HYDROCHLOROTHIAZIDE
     Indication: HYPERTENSION
     Dosage: 25 MG, 1X/DAY
  12. ONDANSETRON ODT DRLA [Concomitant]
     Indication: NAUSEA
     Dosage: 4 MG, AS NEEDED (1 TABX2DAY)
  13. RESTASIS [Concomitant]
     Active Substance: CYCLOSPORINE
     Indication: VISUAL IMPAIRMENT
  14. MIRALAX [Concomitant]
     Active Substance: POLYETHYLENE GLYCOL 3350
     Indication: OBSTRUCTION
  15. GAS-X [Concomitant]
     Active Substance: DIMETHICONE
     Indication: ABDOMINAL DISTENSION
     Dosage: 1 TABLET A DAY AS NEEDED
  16. PREMARIN [Suspect]
     Active Substance: ESTROGENS, CONJUGATED
     Indication: DEPRESSION
  17. OXYCODONE HYDROCHLORIDE. [Concomitant]
     Active Substance: OXYCODONE HYDROCHLORIDE
     Indication: PAIN
     Dosage: 100MG/5ML-0.25 ML 2 TO 3 TIMES DAY
     Route: 048
  18. ALPRAZOLAM. [Concomitant]
     Active Substance: ALPRAZOLAM
     Indication: DEPRESSION
  19. BIOTIN [Concomitant]
     Active Substance: BIOTIN
     Indication: NAIL DISORDER
  20. VITAMIN B [Concomitant]
     Active Substance: VITAMIN B
  21. OPTIVE [Concomitant]
     Active Substance: CARBOXYMETHYLCELLULOSE SODIUM\GLYCERIN
     Indication: VISUAL IMPAIRMENT
  22. VITAMIN D3 [Concomitant]
     Active Substance: CHOLECALCIFEROL
     Indication: THYROID DISORDER
     Dosage: 400 UNITS 2 DAY PER D.R
  23. SUMATRIPTAN SUCCINATE. [Concomitant]
     Active Substance: SUMATRIPTAN SUCCINATE
     Indication: MIGRAINE
     Dosage: 50 MG, AS NEEDED
     Route: 048
  24. SUMATRIPTAN SUCCINATE. [Concomitant]
     Active Substance: SUMATRIPTAN SUCCINATE
     Indication: TOOTH DISORDER
  25. CLONAZEPAM. [Concomitant]
     Active Substance: CLONAZEPAM
     Indication: DEPRESSION
  26. CLONAZEPAM. [Concomitant]
     Active Substance: CLONAZEPAM
     Indication: PANIC ATTACK
  27. BIOTIN [Concomitant]
     Active Substance: BIOTIN
     Indication: HYPOTHYROIDISM
  28. BIOTIN [Concomitant]
     Active Substance: BIOTIN
     Indication: DRY SKIN
  29. MOTRIN IB [Concomitant]
     Active Substance: IBUPROFEN
     Indication: PAIN
  30. HYLAND^S RESTFUL LEGS [Concomitant]
     Active Substance: HOMEOPATHICS
     Indication: FIBROMYALGIA
     Dosage: 1 DF, AS NEEDED
  31. OPTIVE [Concomitant]
     Active Substance: CARBOXYMETHYLCELLULOSE SODIUM\GLYCERIN
     Indication: DRY EYE
     Dosage: UNK (ALL DAY)
  32. ENSURE [Concomitant]
     Active Substance: AMINO ACIDS\DEXTROSE\ELECTROLYTES NOS\SOYBEAN OIL\VITAMINS
     Indication: NUTRITIONAL SUPPLEMENTATION
  33. SYNTHROID [Concomitant]
     Active Substance: LEVOTHYROXINE SODIUM
     Indication: BASEDOW^S DISEASE
  34. ONDANSETRON ODT DRLA [Concomitant]
     Indication: VOMITING
  35. HYLAND^S LEG CRAMPS [Concomitant]
     Active Substance: HOMEOPATHICS
     Dosage: 2 DF, UNK (UNDER TONGUE)
     Route: 060
  36. PREMARIN [Suspect]
     Active Substance: ESTROGENS, CONJUGATED
     Indication: HORMONE REPLACEMENT THERAPY
     Dosage: 0.625 MG, 1X/DAY (EVERY DAY)
     Route: 048
  37. TIZANIDINE. [Concomitant]
     Active Substance: TIZANIDINE
     Indication: PAIN
  38. HYDROCHLOROTHIAZIDE. [Concomitant]
     Active Substance: HYDROCHLOROTHIAZIDE
     Indication: ARTHROPATHY
  39. BIOTIN [Concomitant]
     Active Substance: BIOTIN
     Indication: BASEDOW^S DISEASE
  40. ENSURE [Concomitant]
     Active Substance: AMINO ACIDS\DEXTROSE\ELECTROLYTES NOS\SOYBEAN OIL\VITAMINS
     Indication: PAIN
     Dosage: UNK (8FL OZ- X 4 A WEEK)
  41. HYDROCODONE, PARACETAMOL [Concomitant]
     Active Substance: ACETAMINOPHEN\HYDROCODONE
  42. SYNTHROID [Concomitant]
     Active Substance: LEVOTHYROXINE SODIUM
     Indication: HYPOTHYROIDISM
     Dosage: 112 UG, 1X/DAY
  43. TIZANIDINE. [Concomitant]
     Active Substance: TIZANIDINE
     Indication: FIBROMYALGIA
     Dosage: 4MG. 1 TO 4 TABLET, AS NEEDED
     Route: 048
  44. TIZANIDINE. [Concomitant]
     Active Substance: TIZANIDINE
     Indication: MUSCLE SPASMS
  45. RESTASIS [Concomitant]
     Active Substance: CYCLOSPORINE
     Indication: BASEDOW^S DISEASE
  46. CLONAZEPAM. [Concomitant]
     Active Substance: CLONAZEPAM
     Indication: ANXIETY
     Dosage: 1MG TABLET 1-2 TIMES DAY AS NEED
     Route: 048
  47. MIRALAX [Concomitant]
     Active Substance: POLYETHYLENE GLYCOL 3350
     Indication: CONSTIPATION
     Dosage: UNK, AS NEEDED
  48. BIOTIN [Concomitant]
     Active Substance: BIOTIN
     Indication: TRICHORRHEXIS
     Dosage: 3 DF, 1X/DAY
  49. MOTRIN IB [Concomitant]
     Active Substance: IBUPROFEN
     Indication: FIBROMYALGIA
     Dosage: 200 MG, UNK (SIX TABS)
  50. HYLAND^S RESTFUL LEGS [Concomitant]
     Active Substance: HOMEOPATHICS
     Indication: MUSCLE SPASMS
  51. HYLAND^S RESTFUL LEGS [Concomitant]
     Active Substance: HOMEOPATHICS
     Indication: HYPOAESTHESIA
  52. OPTIVE [Concomitant]
     Active Substance: CARBOXYMETHYLCELLULOSE SODIUM\GLYCERIN
     Indication: BASEDOW^S DISEASE
  53. OPTIVE [Concomitant]
     Active Substance: CARBOXYMETHYLCELLULOSE SODIUM\GLYCERIN
     Indication: MIGRAINE

REACTIONS (4)
  - Pre-existing condition improved [Unknown]
  - Anxiety [Unknown]
  - Viral infection [Unknown]
  - Therapeutic response unexpected [Unknown]
